FAERS Safety Report 6976870-X (Version None)
Quarter: 2010Q3

REPORT INFORMATION
  Report Type: 
  Country: None (occurrence: None)
  Receive Date: 20100910
  Receipt Date: 20100908
  Transmission Date: 20110219
  Serious: Yes (Other)
  Sender: FDA-Public Use
  Company Number: B0671963A

PATIENT
  Age: 43 Year
  Sex: Female

DRUGS (20)
  1. CETIRIZINE HCL [Suspect]
     Dosage: 10MG PER DAY
     Route: 048
  2. METHOCARBAMOL [Suspect]
     Indication: PAIN
     Dosage: 500MG TWICE PER DAY
     Route: 048
  3. BACLOFEN [Suspect]
     Indication: RESTLESS LEGS SYNDROME
     Dosage: 20MG THREE TIMES PER DAY
     Route: 048
  4. SIMVASTATIN [Suspect]
     Indication: BLOOD CHOLESTEROL INCREASED
     Dosage: 40MG PER DAY
     Route: 048
  5. OMEPRAZOLE [Suspect]
     Dosage: 40MG PER DAY
     Route: 048
  6. LYRICA [Suspect]
     Indication: FIBROMYALGIA
     Dosage: 150MG FOUR TIMES PER DAY
     Route: 048
  7. FLUTICASONE PROPIONATE [Suspect]
     Indication: NASAL SEPTUM DEVIATION
     Route: 048
  8. MELOXICAM [Suspect]
     Indication: PAIN
     Dosage: 15MG TWICE PER DAY
     Route: 048
  9. ACETYLSALICYLIC ACID [Suspect]
     Dosage: 81MG PER DAY
     Route: 048
  10. LEVOTHYROXINE SODIUM [Suspect]
     Indication: THYROID DISORDER
     Dosage: 50MCG PER DAY
     Route: 048
  11. TEGRETOL [Suspect]
     Indication: MOOD SWINGS
     Route: 048
  12. PROVIGIL [Suspect]
     Route: 048
  13. PROPRANOLOL [Suspect]
     Dosage: 20MG TWICE PER DAY
     Route: 048
  14. METHADONE [Suspect]
     Indication: PAIN
     Dosage: 10MG FIVE TIMES PER DAY
     Route: 048
  15. CYMBALTA [Suspect]
     Indication: DEPRESSION
     Dosage: 60MG TWICE PER DAY
     Route: 048
  16. LIDOCAINE [Suspect]
     Indication: MYALGIA
     Route: 062
  17. INSULIN [Suspect]
     Dosage: 47UNIT TWICE PER DAY
     Route: 058
  18. MIRALAX [Suspect]
     Indication: CONSTIPATION
     Dosage: 17G PER DAY
     Route: 048
  19. FISH OIL [Suspect]
     Indication: PRODUCT USED FOR UNKNOWN INDICATION
     Route: 065
  20. TOCOPHEROL CONCENTRATE CAP [Suspect]
     Indication: PRODUCT USED FOR UNKNOWN INDICATION
     Route: 065

REACTIONS (2)
  - CONVULSION [None]
  - FIBROMYALGIA [None]
